FAERS Safety Report 6165431-0 (Version None)
Quarter: 2009Q2

REPORT INFORMATION
  Report Type: 
  Country: None (occurrence: None)
  Receive Date: 20090423
  Receipt Date: 20090420
  Transmission Date: 20091009
  Serious: Yes (Death, Hospitalization, Other)
  Sender: FDA-Public Use
  Company Number: US-MERCK-0805USA00702

PATIENT
  Age: 73 Year
  Sex: Male

DRUGS (2)
  1. FOSAMAX [Suspect]
     Indication: OSTEOPOROSIS
     Route: 048
     Dates: start: 20000101, end: 20060101
  2. FOSAMAX [Suspect]
     Route: 048
     Dates: start: 20000101, end: 20060101

REACTIONS (10)
  - ABNORMAL LOSS OF WEIGHT [None]
  - ANXIETY [None]
  - CHRONIC SINUSITIS [None]
  - DEATH [None]
  - DEPRESSION [None]
  - NASAL CAVITY CANCER [None]
  - NASAL SEPTUM PERFORATION [None]
  - OSTEONECROSIS [None]
  - OSTEORADIONECROSIS [None]
  - RENAL FAILURE [None]
